FAERS Safety Report 5097955-1 (Version None)
Quarter: 2006Q3

REPORT INFORMATION
  Report Type: 
  Country: None (occurrence: None)
  Receive Date: 20060905
  Receipt Date: 20060822
  Transmission Date: 20061208
  Serious: Yes (Other)
  Sender: FDA-Public Use
  Company Number: GXKR2006IR05102

PATIENT
  Age: 21 Year
  Sex: Male
  Weight: 80 kg

DRUGS (1)
  1. DIGOXIN [Suspect]
     Dosage: 0.5 MG, ONCE/SINGLE, INTRATHECAL
     Route: 037

REACTIONS (11)
  - ABDOMINAL DISTENSION [None]
  - AGITATION [None]
  - AREFLEXIA [None]
  - DRUG ADMINISTRATION ERROR [None]
  - HYPERTENSION [None]
  - INCORRECT ROUTE OF DRUG ADMINISTRATION [None]
  - PARAESTHESIA [None]
  - PARALYSIS [None]
  - TACHYCARDIA [None]
  - URINARY RETENTION [None]
  - WRONG DRUG ADMINISTERED [None]
